FAERS Safety Report 7843801-X (Version None)
Quarter: 2011Q4

REPORT INFORMATION
  Report Type: 
  Country: None (occurrence: None)
  Receive Date: 20111025
  Receipt Date: 20111012
  Transmission Date: 20120403
  Serious: Yes (Other)
  Sender: FDA-Public Use
  Company Number: US-BAYER-2011-020328

PATIENT
  Sex: Female
  Weight: 57.596 kg

DRUGS (1)
  1. YAZ [Suspect]
     Dosage: UNK
     Route: 048
     Dates: start: 20090621, end: 20090624

REACTIONS (14)
  - WEIGHT INCREASED [None]
  - FEELING ABNORMAL [None]
  - RESTLESSNESS [None]
  - VOMITING [None]
  - INJURY [None]
  - MIGRAINE [None]
  - POOR QUALITY SLEEP [None]
  - PAIN IN EXTREMITY [None]
  - PHLEBITIS [None]
  - DEHYDRATION [None]
  - VEIN DISORDER [None]
  - HYPOAESTHESIA [None]
  - VEIN PAIN [None]
  - PAIN [None]
